FAERS Safety Report 22090255 (Version 1)
Quarter: 2023Q1

REPORT INFORMATION
  Report Type: Report from Study
  Country: FR (occurrence: None)
  Receive Date: 20230313
  Receipt Date: 20230313
  Transmission Date: 20230417
  Serious: Yes (Life-Threatening, Hospitalization, Other)
  Sender: FDA-Public Use
  Company Number: 2023A042933

PATIENT
  Age: 757 Month
  Sex: Female

DRUGS (6)
  1. CERALASERTIB [Suspect]
     Active Substance: CERALASERTIB
     Indication: Neoplasm
     Route: 048
     Dates: start: 20230209
  2. OLAPARIB [Suspect]
     Active Substance: OLAPARIB
     Indication: Neoplasm
     Route: 048
     Dates: start: 20230209
  3. VALPROMIDE [Concomitant]
     Active Substance: VALPROMIDE
     Route: 048
     Dates: start: 2021
  4. CODEINE PHOSPHATE/NAPROXEN SODIUM [Concomitant]
     Indication: Hepatic cancer
     Route: 048
     Dates: start: 2021
  5. OXAZEPAM [Concomitant]
     Active Substance: OXAZEPAM
     Indication: Insomnia
     Route: 048
     Dates: start: 20230207
  6. AMOXICILLIN TRIHYDRATE/CLARITHROMYCIN/ESOMEPRAZOLE MAGNESIUM [Concomitant]
     Indication: Gastrooesophageal reflux disease
     Route: 048
     Dates: start: 20230209

REACTIONS (1)
  - Febrile neutropenia [Recovered/Resolved]

NARRATIVE: CASE EVENT DATE: 20230220
